FAERS Safety Report 6044500-X (Version None)
Quarter: 2009Q1

REPORT INFORMATION
  Report Type: 
  Country: None (occurrence: None)
  Receive Date: 20090120
  Receipt Date: 20090108
  Transmission Date: 20090719
  Serious: Yes (Other)
  Sender: FDA-Public Use
  Company Number: BR-PFIZER INC-2008100365

PATIENT

DRUGS (5)
  1. FRONTAL [Suspect]
     Indication: AGITATION
     Route: 048
     Dates: start: 20040101
  2. DIAMICRON MR [Concomitant]
  3. METFORMIN HCL [Concomitant]
     Indication: DIABETES MELLITUS
  4. ZANIDIP [Concomitant]
     Indication: HYPERTENSION
  5. FEMARA [Concomitant]

REACTIONS (1)
  - BREAST CANCER FEMALE [None]
